FAERS Safety Report 9232671 (Version 2)
Quarter: 2013Q2

REPORT INFORMATION
  Report Type: Spontaneous
  Country: US (occurrence: US)
  Receive Date: 20130416
  Receipt Date: 20130528
  Transmission Date: 20140414
  Serious: No
  Sender: FDA-Public Use
  Company Number: US-009507513-1304USA006321

PATIENT
  Sex: Female
  Weight: 73.92 kg

DRUGS (1)
  1. NASONEX [Suspect]
     Dosage: 2 INHALATIONS, ONCE A DAY
     Route: 045
     Dates: start: 201206

REACTIONS (3)
  - Drug dose omission [Unknown]
  - Product quality issue [Unknown]
  - No adverse event [Unknown]
